FAERS Safety Report 6297777-X (Version None)
Quarter: 2009Q3

REPORT INFORMATION
  Report Type: 
  Country: None (occurrence: None)
  Receive Date: 20090804
  Receipt Date: 20090804
  Transmission Date: 20100115
  Serious: No
  Sender: FDA-Public Use
  Company Number: None

PATIENT
  Age: 66 Year
  Sex: Male
  Weight: 97.977 kg

DRUGS (1)
  1. METFORMIN HCL [Suspect]
     Dosage: 500 MG, 2 X/DAY, PO
     Route: 048
     Dates: start: 20070523, end: 20070705

REACTIONS (4)
  - DYSGEUSIA [None]
  - OEDEMA PERIPHERAL [None]
  - PROTEINURIA [None]
  - RENAL FAILURE CHRONIC [None]
